FAERS Safety Report 4710515-4 (Version None)
Quarter: 2005Q3

REPORT INFORMATION
  Report Type: 
  Country: None (occurrence: None)
  Receive Date: 20050707
  Receipt Date: 20050624
  Transmission Date: 20060218
  Serious: Yes (Hospitalization)
  Sender: FDA-Public Use
  Company Number: 2005092797

PATIENT
  Age: 49 Year
  Sex: Male

DRUGS (5)
  1. SOLU-MEDROL [Suspect]
     Indication: RENAL TRANSPLANT
     Dosage: 250 MG (1 D), INTRAVENOUS
     Route: 042
     Dates: start: 20050503
  2. ATARAX [Suspect]
     Indication: DRUG INTOLERANCE
     Dosage: (100 MG,), ORAL
     Route: 048
     Dates: start: 20050503, end: 20050503
  3. SIMULECT [Suspect]
     Indication: RENAL TRANSPLANT
     Dosage: 20 MG (1 D), INTRAVENOUS
     Route: 042
     Dates: start: 20050503, end: 20050503
  4. POLARAMINE [Suspect]
     Indication: RENAL TRANSPLANT
     Dosage: INTRAVENOUS
     Route: 042
     Dates: start: 20050503, end: 20050503
  5. CELLCEPT [Suspect]
     Indication: RENAL TRANSPLANT
     Dosage: 1 GRAM (1 D), ORAL
     Route: 048
     Dates: start: 20050503

REACTIONS (3)
  - COMPLICATIONS OF TRANSPLANT SURGERY [None]
  - DRUG INTOLERANCE [None]
  - HAEMOLYTIC URAEMIC SYNDROME [None]
